FAERS Safety Report 6695403-9 (Version None)
Quarter: 2010Q2

REPORT INFORMATION
  Report Type: 
  Country: None (occurrence: None)
  Receive Date: 20100422
  Receipt Date: 20100422
  Transmission Date: 20101027
  Serious: Yes (Other)
  Sender: FDA-Public Use
  Company Number: None

PATIENT
  Age: 83 Year
  Sex: Female
  Weight: 58.0604 kg

DRUGS (4)
  1. CLARITIN-D [Suspect]
     Indication: MULTIPLE ALLERGIES
     Dosage: 10 MG. ONCE A DAY PILL
     Dates: start: 20100201
  2. CLARITIN-D [Suspect]
     Indication: MULTIPLE ALLERGIES
     Dosage: 10 MG. ONCE A DAY PILL
     Dates: start: 20100301
  3. SYSTANE ULTRA EYE DROPS ALCON [Suspect]
     Indication: EYE IRRITATION
     Dosage: 2 DROPS AS NEEDED DROPS
     Dates: start: 20100301
  4. SYSTANE ULTRA EYE DROPS ALCON [Suspect]
     Indication: EYE PRURITUS
     Dosage: 2 DROPS AS NEEDED DROPS
     Dates: start: 20100301

REACTIONS (3)
  - FROSTBITE [None]
  - NAIL DISCOLOURATION [None]
  - SKIN DISCOLOURATION [None]
